FAERS Safety Report 10440221 (Version 2)
Quarter: 2014Q3

REPORT INFORMATION
  Report Type: Spontaneous
  Country: US (occurrence: US)
  Receive Date: 20140908
  Receipt Date: 20140908
  Transmission Date: 20150326
  Serious: Yes (Hospitalization)
  Sender: FDA-Public Use
  Company Number: US-BRISTOL-MYERS SQUIBB COMPANY-20132114

PATIENT
  Age: 16 Year
  Sex: Female

DRUGS (4)
  1. GUANFACINE HCL [Concomitant]
     Indication: DISTURBANCE IN ATTENTION
  2. WELLBUTRIN [Concomitant]
     Active Substance: BUPROPION HYDROCHLORIDE
  3. ABILIFY [Suspect]
     Active Substance: ARIPIPRAZOLE
     Indication: DEPRESSION
     Dosage: STARTED WITH 10MG, INCREASED TO 15MG,20MG,
     Dates: start: 20131218
  4. GUANFACINE HCL [Concomitant]
     Indication: ANXIETY DISORDER

REACTIONS (5)
  - Depression [Unknown]
  - Weight increased [Unknown]
  - Wrong technique in drug usage process [Unknown]
  - Drug ineffective [Unknown]
  - Eating disorder [Unknown]
